FAERS Safety Report 5156371-4 (Version None)
Quarter: 2006Q4

REPORT INFORMATION
  Report Type: 
  Country: None (occurrence: None)
  Receive Date: 20061114
  Receipt Date: 20061030
  Transmission Date: 20070319
  Serious: Yes (Death)
  Sender: FDA-Public Use
  Company Number: US017159

PATIENT
  Sex: Female

DRUGS (2)
  1. PROVIGIL [Suspect]
  2. BENADRYL [Suspect]

REACTIONS (2)
  - OVERDOSE [None]
  - RESPIRATORY ARREST [None]
